FAERS Safety Report 13193120 (Version 1)
Quarter: 2017Q1

REPORT INFORMATION
  Report Type: Report from Study
  Country: GB (occurrence: GB)
  Receive Date: 20170207
  Receipt Date: 20170207
  Transmission Date: 20170428
  Serious: Yes (Other)
  Sender: FDA-Public Use
  Company Number: GB-MYLANLABS-2017M1006494

PATIENT

DRUGS (2)
  1. METHOTREXATE. [Suspect]
     Active Substance: METHOTREXATE
     Indication: RHEUMATOID ARTHRITIS
     Dosage: AT BASELINE AT 24 WEEKS
     Route: 050
  2. OCRELIZUMAB [Suspect]
     Active Substance: OCRELIZUMAB
     Indication: RHEUMATOID ARTHRITIS
     Dosage: 500MG X 2 INFUSIONS
     Route: 050

REACTIONS (1)
  - Infusion related reaction [Recovered/Resolved]
